FAERS Safety Report 10146325 (Version 2)
Quarter: 2014Q2

REPORT INFORMATION
  Report Type: Spontaneous
  Country: PL (occurrence: PL)
  Receive Date: 20140501
  Receipt Date: 20140512
  Transmission Date: 20141212
  Serious: Yes (Hospitalization, Other)
  Sender: FDA-Public Use
  Company Number: PL-PFIZER INC-2014117273

PATIENT
  Age: 6 Year
  Sex: Male

DRUGS (10)
  1. METHYLPREDNISOLONE SODIUM SUCCINATE [Suspect]
     Indication: HISTIOCYTOSIS HAEMATOPHAGIC
     Dosage: 15 MG/KG, PULSES, HIGH-DOSE (AS A FRACTIONAL 1-2MG/KG AND PULSES 10-30 MG/KG)
     Route: 042
  2. METHYLPREDNISOLONE SODIUM SUCCINATE [Interacting]
     Indication: HISTIOCYTOSIS HAEMATOPHAGIC
  3. CYCLOSPORIN A [Interacting]
     Indication: HISTIOCYTOSIS HAEMATOPHAGIC
     Dosage: 5 MG/KG
  4. CYCLOSPORIN A [Interacting]
     Indication: HISTIOCYTOSIS HAEMATOPHAGIC
  5. KETOCONAZOLE [Interacting]
     Indication: ORAL MUCOSA EROSION
     Dosage: UNK
  6. KETOCONAZOLE [Interacting]
     Indication: ANTIBIOTIC THERAPY
  7. IMMUNOGLOBULIN [Concomitant]
     Indication: HISTIOCYTOSIS HAEMATOPHAGIC
     Dosage: 2 G/KG
  8. IMMUNOGLOBULIN [Concomitant]
     Indication: HISTIOCYTOSIS HAEMATOPHAGIC
  9. ACICLOVIR [Concomitant]
     Indication: ORAL MUCOSA EROSION
  10. ACICLOVIR [Concomitant]
     Indication: ANTIBIOTIC THERAPY

REACTIONS (3)
  - Drug interaction [Recovering/Resolving]
  - Drug level increased [Recovering/Resolving]
  - Posterior reversible encephalopathy syndrome [Recovering/Resolving]
